FAERS Safety Report 9348178 (Version 2)
Quarter: 2013Q2

REPORT INFORMATION
  Report Type: Report from Study
  Country: ES (occurrence: ES)
  Receive Date: 20130614
  Receipt Date: 20130626
  Transmission Date: 20140414
  Serious: Yes (Hospitalization)
  Sender: FDA-Public Use
  Company Number: ES-CELGENEUS-144-21880-13060463

PATIENT
  Age: 84 Year
  Sex: Male
  Weight: 70 kg

DRUGS (10)
  1. REVLIMID [Suspect]
     Indication: PLASMA CELL MYELOMA
     Route: 048
     Dates: start: 20121221
  2. REVLIMID [Suspect]
     Route: 048
     Dates: end: 20130518
  3. VELCADE [Suspect]
     Indication: PLASMA CELL MYELOMA
     Route: 041
     Dates: start: 20130128, end: 20130430
  4. VELCADE [Suspect]
     Route: 041
     Dates: end: 20130430
  5. DEXAMETHASONE [Suspect]
     Indication: PLASMA CELL MYELOMA
     Route: 048
     Dates: start: 20121221, end: 20130529
  6. DEXAMETHASONE [Suspect]
     Route: 048
     Dates: end: 20130529
  7. PREDNISONE [Suspect]
     Indication: PLASMA CELL MYELOMA
     Route: 048
     Dates: start: 20130128
  8. PREDNISONE [Suspect]
     Route: 048
     Dates: end: 20130412
  9. MELPHALAN [Suspect]
     Indication: PLASMA CELL MYELOMA
     Route: 048
     Dates: start: 20130128
  10. MELPHALAN [Suspect]
     Route: 048
     Dates: end: 20130412

REACTIONS (1)
  - Metabolic acidosis [Recovered/Resolved]
